FAERS Safety Report 24993231 (Version 1)
Quarter: 2025Q1

REPORT INFORMATION
  Report Type: Spontaneous
  Country: FR (occurrence: FR)
  Receive Date: 20250221
  Receipt Date: 20250221
  Transmission Date: 20250408
  Serious: Yes (Hospitalization, Other)
  Sender: AUROBINDO
  Company Number: FR-AFSSAPS-CN2024001133

PATIENT
  Age: 65 Year
  Sex: Male
  Weight: 66 kg

DRUGS (8)
  1. MELPHALAN [Suspect]
     Active Substance: MELPHALAN
     Indication: Allogenic stem cell transplantation
     Route: 042
     Dates: start: 20241104
  2. CIPROFLOXACIN [Suspect]
     Active Substance: CIPROFLOXACIN
     Indication: Pneumonia pseudomonal
     Dosage: 400 MILLIGRAM, 3 TIMES A DAY
     Route: 042
     Dates: start: 20241115
  3. ONDANSETRON [Suspect]
     Active Substance: ONDANSETRON
     Indication: Product used for unknown indication
     Dosage: 24 MILLIGRAM, ONCE A DAY
     Route: 042
     Dates: start: 20241111
  4. PIPERACILLIN SODIUM\TAZOBACTAM SODIUM [Suspect]
     Active Substance: PIPERACILLIN SODIUM\TAZOBACTAM SODIUM
     Indication: Pneumonia pseudomonal
     Dosage: 16 GRAM, ONCE A DAY
     Route: 042
     Dates: start: 20241111
  5. FILGRASTIM [Suspect]
     Active Substance: FILGRASTIM
     Indication: Product used for unknown indication
     Dosage: 48 MEGA-INTERNATIONAL UNIT, ONCE A DAY(48/0.5 MEGA-INTERNATIONAL UNIT PER MILLILITRE)
     Route: 058
     Dates: start: 20241111
  6. CEFEPIME [Suspect]
     Active Substance: CEFEPIME HYDROCHLORIDE
     Indication: Pneumonia pseudomonal
     Dosage: 6 GRAM, ONCE A DAY (6 GRAMS / 24 HOURS CONTINUOUSLY)
     Route: 042
     Dates: start: 20241113
  7. UMECLIDINIUM BROMIDE\VILANTEROL TRIFENATATE [Concomitant]
     Active Substance: UMECLIDINIUM BROMIDE\VILANTEROL TRIFENATATE
     Indication: Product used for unknown indication
     Dosage: 55 MICROGRAM, ONCE A DAY
     Route: 065
  8. VALACYCLOVIR HYDROCHLORIDE [Concomitant]
     Active Substance: VALACYCLOVIR HYDROCHLORIDE
     Indication: Product used for unknown indication
     Dosage: 1000 MILLIGRAM, ONCE A DAY (500MG MORNING AND EVENING)
     Route: 048
     Dates: start: 20241030

REACTIONS (3)
  - Septic shock [Recovered/Resolved]
  - Pneumonia pseudomonal [Recovered/Resolved]
  - Renal tubular acidosis [Recovered/Resolved]

NARRATIVE: CASE EVENT DATE: 20241111
